FAERS Safety Report 6282670-9 (Version None)
Quarter: 2009Q3

REPORT INFORMATION
  Report Type: 
  Country: None (occurrence: None)
  Receive Date: 20090724
  Receipt Date: 20090721
  Transmission Date: 20100115
  Serious: Yes (Life-Threatening, Hospitalization, Other)
  Sender: FDA-Public Use
  Company Number: PHHY2009AU27657

PATIENT
  Sex: Male

DRUGS (5)
  1. ACLASTA [Suspect]
     Indication: OSTEOPOROSIS
     Dosage: UNK
     Dates: start: 20090630
  2. TAMBOCOR [Concomitant]
  3. METOPROLOL TARTRATE [Concomitant]
  4. CALTRATE [Concomitant]
  5. PROSCAR [Concomitant]

REACTIONS (7)
  - ARRHYTHMIA [None]
  - BALANCE DISORDER [None]
  - BRADYARRHYTHMIA [None]
  - CARDIAC PACEMAKER INSERTION [None]
  - PALPITATIONS [None]
  - SYNCOPE [None]
  - TENSION HEADACHE [None]
